FAERS Safety Report 8516683-0 (Version None)
Quarter: 2012Q2

REPORT INFORMATION
  Report Type: 
  Country: None (occurrence: None)
  Receive Date: 20120406
  Receipt Date: 20101129
  Transmission Date: 20120825
  Serious: Yes (Death, Other)
  Sender: FDA-Public Use
  Company Number: PHHY2010US81564

PATIENT
  Age: 48 Year
  Sex: Female

DRUGS (2)
  1. LASIX [Concomitant]
  2. TASIGNA [Suspect]
     Indication: GASTROINTESTINAL STROMAL TUMOUR
     Dates: start: 20091101, end: 20100901

REACTIONS (3)
  - GASTROINTESTINAL STROMAL TUMOUR [None]
  - NEOPLASM PROGRESSION [None]
  - TREATMENT NONCOMPLIANCE [None]
